FAERS Safety Report 5602582-0 (Version None)
Quarter: 2008Q1

REPORT INFORMATION
  Report Type: 
  Country: None (occurrence: None)
  Receive Date: 20080125
  Receipt Date: 20080117
  Transmission Date: 20080703
  Serious: Yes (Hospitalization, Other)
  Sender: FDA-Public Use
  Company Number: DE-WYE-G00906408

PATIENT
  Sex: Female

DRUGS (4)
  1. TREVILOR RETARD [Suspect]
     Indication: DEPRESSION
     Route: 048
  2. MIRTAZAPINE [Suspect]
     Route: 048
  3. MIRTAZAPINE [Suspect]
  4. TRIMIPRAMINE MALEATE [Suspect]
     Dosage: UNKNOWN

REACTIONS (5)
  - CONDITION AGGRAVATED [None]
  - DEPRESSION [None]
  - LUNG DISORDER [None]
  - SLEEP DISORDER [None]
  - SUICIDE ATTEMPT [None]
